FAERS Safety Report 4765088-7 (Version None)
Quarter: 2005Q3

REPORT INFORMATION
  Report Type: 
  Country: None (occurrence: None)
  Receive Date: 20050907
  Receipt Date: 20050829
  Transmission Date: 20060218
  Serious: No
  Sender: FDA-Public Use
  Company Number: 2005122258

PATIENT
  Sex: Male
  Weight: 78.4723 kg

DRUGS (4)
  1. NORVASC [Suspect]
     Indication: HYPERTENSION
     Dosage: 5 MG (5 MG, 1 IN 1 D)
  2. TOPROL-XL [Concomitant]
  3. HYZAAR [Concomitant]
  4. DIGOXIN [Concomitant]

REACTIONS (2)
  - BLOOD CHOLESTEROL INCREASED [None]
  - TRANSIENT ISCHAEMIC ATTACK [None]
